FAERS Safety Report 21974688 (Version 1)
Quarter: 2023Q1

REPORT INFORMATION
  Report Type: Spontaneous
  Country: US (occurrence: None)
  Receive Date: 20230208
  Receipt Date: 20230208
  Transmission Date: 20230417
  Serious: Yes (Death, Hospitalization, Other)
  Sender: FDA-Public Use
  Company Number: None

PATIENT
  Age: 57 Year
  Sex: Male
  Weight: 112.9 kg

DRUGS (1)
  1. PADCEV [Suspect]
     Active Substance: ENFORTUMAB VEDOTIN-EJFV
     Dates: start: 20230111, end: 20230118

REACTIONS (5)
  - Diabetic ketoacidosis [None]
  - Metabolic acidosis [None]
  - Renal failure [None]
  - Respiratory distress [None]
  - Shock [None]

NARRATIVE: CASE EVENT DATE: 20230125
